FAERS Safety Report 17135086 (Version 3)
Quarter: 2020Q1

REPORT INFORMATION
  Report Type: Spontaneous
  Country: US (occurrence: US)
  Receive Date: 20191210
  Receipt Date: 20200129
  Transmission Date: 20200409
  Serious: Yes (Other)
  Sender: FDA-Public Use
  Company Number: US-PFIZER INC-2019529134

PATIENT
  Age: 75 Year
  Sex: Female
  Weight: 64 kg

DRUGS (1)
  1. IBRANCE [Suspect]
     Active Substance: PALBOCICLIB
     Dosage: 125 MG, UNK

REACTIONS (6)
  - Neoplasm progression [Unknown]
  - Blood count abnormal [Unknown]
  - Weight decreased [Unknown]
  - Cardiac disorder [Unknown]
  - Infection [Unknown]
  - Atrial fibrillation [Unknown]
